FAERS Safety Report 19262720 (Version 2)
Quarter: 2021Q3

REPORT INFORMATION
  Report Type: Spontaneous
  Country: US (occurrence: US)
  Receive Date: 20210517
  Receipt Date: 20210701
  Transmission Date: 20211014
  Serious: Yes (Other)
  Sender: FDA-Public Use
  Company Number: US-BEH-2021131663

PATIENT
  Sex: Male

DRUGS (2)
  1. HAEGARDA [Suspect]
     Active Substance: HUMAN C1-ESTERASE INHIBITOR
     Indication: HEREDITARY ANGIOEDEMA
     Dosage: 6 MILLILITER (3000 UNITS), BIW, TWICE WEEKLY
     Route: 058
     Dates: start: 20200915
  2. HAEGARDA [Suspect]
     Active Substance: HUMAN C1-ESTERASE INHIBITOR
     Indication: PROPHYLAXIS
     Dosage: UNK
     Route: 058

REACTIONS (5)
  - Haemorrhage [Unknown]
  - Eye pain [Unknown]
  - Headache [Unknown]
  - No adverse event [Unknown]
  - Product packaging issue [Unknown]
